FAERS Safety Report 14264229 (Version 1)
Quarter: 2017Q4

REPORT INFORMATION
  Report Type: Spontaneous
  Country: TR (occurrence: TR)
  Receive Date: 20171208
  Receipt Date: 20171208
  Transmission Date: 20180321
  Serious: Yes (Life-Threatening, Hospitalization, Disabling, Other)
  Sender: FDA-Public Use
  Company Number: TR-PFIZER INC-2017525432

PATIENT
  Age: 42 Year
  Sex: Male
  Weight: 76 kg

DRUGS (1)
  1. SALAZOPYRIN [Suspect]
     Active Substance: SULFASALAZINE
     Indication: RHEUMATIC DISORDER
     Dosage: UNK
     Route: 048

REACTIONS (6)
  - Immunodeficiency [Recovered/Resolved]
  - Malaise [Recovered/Resolved]
  - Pharyngitis [Recovered/Resolved]
  - Loss of consciousness [Unknown]
  - Hallucination [Unknown]
  - Pyrexia [Unknown]

NARRATIVE: CASE EVENT DATE: 20161222
